FAERS Safety Report 7938345-0 (Version None)
Quarter: 2011Q4

REPORT INFORMATION
  Report Type: 
  Country: None (occurrence: None)
  Receive Date: 20111123
  Receipt Date: 20111114
  Transmission Date: 20120403
  Serious: Yes (Other)
  Sender: FDA-Public Use
  Company Number: US-ASTRAZENECA-2011SE54496

PATIENT
  Age: 47 Year
  Sex: Female
  Weight: 75.3 kg

DRUGS (23)
  1. SANCTURA XR [Concomitant]
     Route: 048
     Dates: end: 20110712
  2. BENZTROPINE MESYLATE [Concomitant]
     Route: 048
     Dates: end: 20110712
  3. TRAZODONE HCL [Concomitant]
     Route: 048
  4. TEMAZEPAM [Concomitant]
     Route: 048
  5. NEXIUM [Suspect]
     Route: 048
  6. ABILIFY [Concomitant]
     Route: 048
     Dates: end: 20110616
  7. ABILIFY [Concomitant]
     Route: 048
  8. VITAMIN D [Concomitant]
  9. ACETAMINOPHEN AND HYDROCODONE BITARTRATE [Concomitant]
     Dosage: 7.5-500 MG AS NEEDED
     Route: 048
  10. PREMARIN [Concomitant]
     Dosage: 0.625 MG/GM AS NEEDED
     Route: 067
  11. VESICARE [Concomitant]
     Route: 048
  12. TEMAZEPAM [Concomitant]
     Route: 048
     Dates: end: 20110404
  13. VENLAFAXINE HCL [Concomitant]
     Route: 048
     Dates: end: 20110404
  14. VENLAFAXINE HCL [Concomitant]
     Route: 048
  15. FEOSAL [Concomitant]
     Route: 048
  16. ESTRACE [Concomitant]
     Dosage: 0.1 MG/GM EVERY 2-3 DAYS
     Route: 067
  17. BENZTROPINE MESYLATE [Concomitant]
     Route: 048
  18. ASPIRIN [Concomitant]
     Route: 048
  19. CLONAZEPAM ODT [Concomitant]
     Route: 048
  20. SANCTURA XR [Concomitant]
     Route: 048
  21. PRISTIQ [Concomitant]
     Route: 048
  22. EVISTA [Concomitant]
     Route: 048
  23. VENTOLIN HFA [Concomitant]
     Dosage: 180/90 MCG 1 INHALATION AS NEEDED
     Route: 055

REACTIONS (32)
  - VISUAL IMPAIRMENT [None]
  - PERSONALITY CHANGE [None]
  - CENTRAL NERVOUS SYSTEM INFECTION [None]
  - GAIT DISTURBANCE [None]
  - NERVOUS SYSTEM DISORDER [None]
  - MIGRAINE [None]
  - ANXIETY DISORDER [None]
  - GASTROOESOPHAGEAL REFLUX DISEASE [None]
  - SINUSITIS [None]
  - POST-TRAUMATIC STRESS DISORDER [None]
  - DYSTHYMIC DISORDER [None]
  - INFECTIOUS MONONUCLEOSIS [None]
  - PANIC DISORDER [None]
  - MENTAL DISORDER [None]
  - EMOTIONAL DISTRESS [None]
  - DRUG DEPENDENCE [None]
  - JUDGEMENT IMPAIRED [None]
  - ACTIVITIES OF DAILY LIVING IMPAIRED [None]
  - ABNORMAL BEHAVIOUR [None]
  - MATERNAL EXPOSURE DURING PREGNANCY [None]
  - DEPRESSION [None]
  - ANAEMIA [None]
  - CONFUSIONAL STATE [None]
  - HEPATIC FUNCTION ABNORMAL [None]
  - LOSS OF CONSCIOUSNESS [None]
  - COGNITIVE DISORDER [None]
  - MEMORY IMPAIRMENT [None]
  - AGORAPHOBIA [None]
  - PYREXIA [None]
  - VERTIGO [None]
  - CEREBRAL ATROPHY [None]
  - IRRITABLE BOWEL SYNDROME [None]
